FAERS Safety Report 7995703-6 (Version None)
Quarter: 2011Q4

REPORT INFORMATION
  Report Type: 
  Country: None (occurrence: None)
  Receive Date: 20111220
  Receipt Date: 20111214
  Transmission Date: 20120403
  Serious: Yes (Hospitalization, Other)
  Sender: FDA-Public Use
  Company Number: US-ROCHE-792703

PATIENT
  Sex: Male
  Weight: 89.438 kg

DRUGS (1)
  1. ACCUTANE [Suspect]
     Indication: ACNE CYSTIC
     Dates: start: 20000601, end: 20001231

REACTIONS (8)
  - POST-TRAUMATIC STRESS DISORDER [None]
  - BLOOD TRIGLYCERIDES INCREASED [None]
  - COLITIS ULCERATIVE [None]
  - INFLAMMATORY BOWEL DISEASE [None]
  - DEPRESSION [None]
  - HEPATIC ENZYME INCREASED [None]
  - SUICIDAL IDEATION [None]
  - LIP DRY [None]
